FAERS Safety Report 10373240 (Version 1)
Quarter: 2014Q3

REPORT INFORMATION
  Report Type: Spontaneous
  Country: US (occurrence: US)
  Receive Date: 20140808
  Receipt Date: 20140808
  Transmission Date: 20150326
  Serious: Yes (Other)
  Sender: FDA-Public Use
  Company Number: US-BRISTOL-MYERS SQUIBB COMPANY-20266268

PATIENT
  Age: 38 Year
  Sex: Female

DRUGS (1)
  1. SPRYCEL [Suspect]
     Active Substance: DASATINIB
     Indication: CHRONIC MYELOID LEUKAEMIA

REACTIONS (11)
  - Hyperhidrosis [Unknown]
  - Dysstasia [Unknown]
  - Fatigue [Unknown]
  - Nausea [Unknown]
  - Aphagia [Unknown]
  - Tinnitus [Unknown]
  - Bone pain [Unknown]
  - Rash [Unknown]
  - Somnolence [Unknown]
  - Respiratory tract congestion [Unknown]
  - White blood cell count increased [Unknown]
